FAERS Safety Report 18738046 (Version 2)
Quarter: 2022Q3

REPORT INFORMATION
  Report Type: Report from Study
  Country: US (occurrence: US)
  Receive Date: 20210113
  Receipt Date: 20220713
  Transmission Date: 20221027
  Serious: No
  Sender: FDA-Public Use
  Company Number: US-VANDA PHARMACEUTICALS, INC-2020TASUS004176

PATIENT
  Sex: Male

DRUGS (1)
  1. HETLIOZ [Suspect]
     Active Substance: TASIMELTEON
     Indication: Non-24-hour sleep-wake disorder
     Dosage: 20 MG, QD 1H BEFORE BEDTIME
     Route: 048

REACTIONS (4)
  - Insomnia [Unknown]
  - Adverse event [Unknown]
  - Overdose [Unknown]
  - Product administration interrupted [Unknown]
